FAERS Safety Report 23393527 (Version 2)
Quarter: 2024Q1

REPORT INFORMATION
  Report Type: Report from Study
  Country: GB (occurrence: GB)
  Receive Date: 20240111
  Receipt Date: 20240117
  Transmission Date: 20240409
  Serious: Yes (Other)
  Sender: FDA-Public Use
  Company Number: GB-002147023-NVSC2024GB005323

PATIENT
  Sex: Female

DRUGS (1)
  1. COSENTYX [Suspect]
     Active Substance: SECUKINUMAB
     Indication: Psoriatic arthropathy
     Dosage: 150 MG, QMO (EVERY 28 DAYS) (2 PRE-FILLED DISPOSABLE INJECTION)
     Route: 058

REACTIONS (2)
  - Lower respiratory tract infection [Unknown]
  - Hepatic function abnormal [Unknown]
